FAERS Safety Report 24201967 (Version 5)
Quarter: 2025Q3

REPORT INFORMATION
  Report Type: Report from Study
  Country: EU (occurrence: EU)
  Receive Date: 20240812
  Receipt Date: 20250802
  Transmission Date: 20251021
  Serious: Yes (Death, Life-Threatening, Other)
  Sender: ALEXION PHARMACEUTICALS
  Company Number: 2021A307727

PATIENT
  Sex: Female
  Weight: 49.5 kg

DRUGS (3)
  1. FULVESTRANT [Suspect]
     Active Substance: FULVESTRANT
     Indication: Breast cancer metastatic
     Dates: start: 20210111, end: 20211216
  2. KISQALI [Suspect]
     Active Substance: RIBOCICLIB SUCCINATE
     Indication: Breast cancer metastatic
     Dosage: 400 MG, QD (ADMINISTRATION SCHEME 21 DAYS INTAKE, 7 DAYS PAUSE)
     Dates: start: 20210126, end: 20211117
  3. KISQALI [Suspect]
     Active Substance: RIBOCICLIB SUCCINATE
     Indication: Breast cancer metastatic

REACTIONS (4)
  - Death [Fatal]
  - Neutropenia [Recovered/Resolved]
  - Trichoglossia [Not Recovered/Not Resolved]
  - Off label use [Unknown]

NARRATIVE: CASE EVENT DATE: 20210208
